FAERS Safety Report 12385348 (Version 12)
Quarter: 2023Q2

REPORT INFORMATION
  Report Type: Report from Study
  Country: DE (occurrence: DE)
  Receive Date: 20160519
  Receipt Date: 20230505
  Transmission Date: 20230722
  Serious: Yes (Hospitalization)
  Sender: FDA-Public Use
  Company Number: DE-JNJFOC-20160514848

PATIENT
  Age: 11 Year
  Sex: Female
  Weight: 43.7 kg

DRUGS (6)
  1. REMICADE [Suspect]
     Active Substance: INFLIXIMAB
     Indication: Crohn^s disease
     Route: 041
     Dates: start: 20121217
  2. REMICADE [Suspect]
     Active Substance: INFLIXIMAB
     Route: 041
     Dates: start: 20131210, end: 20160929
  3. BUDESONIDE [Concomitant]
     Active Substance: BUDESONIDE
     Route: 065
  4. BUDESONIDE [Concomitant]
     Active Substance: BUDESONIDE
     Route: 065
  5. ERGOCALCIFEROL [Concomitant]
     Active Substance: ERGOCALCIFEROL
     Route: 065
  6. FOLIC ACID [Concomitant]
     Active Substance: FOLIC ACID
     Route: 065

REACTIONS (2)
  - Abdominal adhesions [Recovered/Resolved]
  - Abdominal pain [Recovered/Resolved]

NARRATIVE: CASE EVENT DATE: 20160509
